FAERS Safety Report 6885907-8 (Version None)
Quarter: 2010Q3

REPORT INFORMATION
  Report Type: 
  Country: None (occurrence: None)
  Receive Date: 20100729
  Receipt Date: 20080606
  Transmission Date: 20110219
  Serious: Yes (Other)
  Sender: FDA-Public Use
  Company Number: US-PFIZER INC-2008041633

PATIENT
  Sex: Male
  Weight: 88.636 kg

DRUGS (1)
  1. CELEBREX [Suspect]
     Indication: INFLAMMATION
     Dosage: 200MG
     Dates: start: 20040101, end: 20060101

REACTIONS (3)
  - ARTERIAL OCCLUSIVE DISEASE [None]
  - HYPERTENSION [None]
  - PAIN IN EXTREMITY [None]
